FAERS Safety Report 9907494 (Version 1)
Quarter: 2014Q1

REPORT INFORMATION
  Report Type: Report from Study
  Country: DE (occurrence: DE)
  Receive Date: 20140218
  Receipt Date: 20140218
  Transmission Date: 20141002
  Serious: Yes (Hospitalization)
  Sender: FDA-Public Use
  Company Number: DE-BAXTER-2014BAX007109

PATIENT
  Age: 63 Year
  Sex: 0
  Weight: 80 kg

DRUGS (2)
  1. ADVATE 250 I.E. [Suspect]
     Indication: FACTOR VIII DEFICIENCY
     Route: 042
     Dates: start: 20040625, end: 20130610
  2. ADVATE 250 I.E. [Suspect]
     Indication: PROPHYLAXIS

REACTIONS (3)
  - Spinal compression fracture [Recovered/Resolved]
  - Thoracic vertebral fracture [Recovered/Resolved]
  - Concussion [Recovered/Resolved]
